FAERS Safety Report 5316948-X (Version None)
Quarter: 2007Q2

REPORT INFORMATION
  Report Type: 
  Country: None (occurrence: None)
  Receive Date: 20070501
  Receipt Date: 20070501
  Transmission Date: 20071010
  Serious: Yes (Hospitalization)
  Sender: FDA-Public Use
  Company Number: None

PATIENT
  Age: 59 Year
  Sex: Male
  Weight: 111.1313 kg

DRUGS (16)
  1. LISINOPRIL [Suspect]
     Indication: HYPERTENSION
     Dosage: 10 MG  DAILY  PO
     Route: 048
     Dates: start: 19971021, end: 20070415
  2. ENOXAPARIN SODIUM [Suspect]
     Indication: DEEP VEIN THROMBOSIS
     Dosage: 30 MG  BID  SQ
     Route: 058
     Dates: start: 20070411, end: 20070413
  3. ASPIRIN [Concomitant]
  4. BUPROPRION [Concomitant]
  5. DIAZEPAM [Concomitant]
  6. DOCUSATE [Concomitant]
  7. FERROUS SULFATE TAB [Concomitant]
  8. GLYBURIDE [Concomitant]
  9. HYDROCODONE [Concomitant]
  10. LORATADINE [Concomitant]
  11. NIFEDIPINE [Concomitant]
  12. SIMVASTATIN [Concomitant]
  13. TRAZODONE HCL [Concomitant]
  14. MECLIZINE [Concomitant]
  15. METFORMIN [Concomitant]
  16. NAPROXEN [Concomitant]

REACTIONS (6)
  - ARTHROSCOPY [None]
  - DYSPNOEA [None]
  - JOINT RESURFACING SURGERY [None]
  - OBSTRUCTIVE AIRWAYS DISORDER [None]
  - RASH [None]
  - SWOLLEN TONGUE [None]
